FAERS Safety Report 14907503 (Version 1)
Quarter: 2018Q2

REPORT INFORMATION
  Report Type: Spontaneous
  Country: US (occurrence: US)
  Receive Date: 20180428
  Receipt Date: 20180428
  Transmission Date: 20180711
  Serious: Yes (Life-Threatening, Hospitalization, Disabling)
  Sender: FDA-Public Use
  Company Number: None

PATIENT
  Sex: Female
  Weight: 75.6 kg

DRUGS (1)
  1. GADOLINIUM [Suspect]
     Active Substance: GADOLINIUM

REACTIONS (11)
  - Toxicity to various agents [None]
  - Irritable bowel syndrome [None]
  - Flatulence [None]
  - Contrast media reaction [None]
  - Muscle twitching [None]
  - Myoclonus [None]
  - Hypoaesthesia [None]
  - Malaise [None]
  - Pharyngeal hypoaesthesia [None]
  - Headache [None]
  - Dyspnoea [None]
